FAERS Safety Report 13783220 (Version 1)
Quarter: 2017Q3

REPORT INFORMATION
  Report Type: Spontaneous
  Country: US (occurrence: US)
  Receive Date: 20170724
  Receipt Date: 20170724
  Transmission Date: 20171127
  Serious: No
  Sender: FDA-Public Use
  Company Number: US-BAUSCH-BL-2016-016494

PATIENT
  Sex: Female

DRUGS (7)
  1. FML [Concomitant]
     Active Substance: FLUOROMETHOLONE
     Indication: HERPES ZOSTER
     Dosage: IN LEFT EYE
     Route: 047
  2. VALTREX [Concomitant]
     Active Substance: VALACYCLOVIR HYDROCHLORIDE
     Indication: HERPES ZOSTER
     Route: 048
     Dates: start: 201507
  3. PURALUBE [Concomitant]
     Active Substance: MINERAL OIL\PETROLATUM
     Indication: HERPES ZOSTER
     Dosage: USE ON LOWER EYELID IN LEFT EYE
     Route: 047
  4. LACRISERT [Suspect]
     Active Substance: HYDROXYPROPYL CELLULOSE
     Dosage: ONE LACRISET OPHTHALMIC INSERT IN HER LEFT EYE ONCE DAILY
     Route: 047
     Dates: start: 20160624, end: 20160704
  5. LACRISERT [Suspect]
     Active Substance: HYDROXYPROPYL CELLULOSE
     Indication: HERPES ZOSTER
     Dosage: ONE LACRISET OPHTHALMIC INSERT IN HER LEFT EYE ONCE DAILY
     Route: 047
     Dates: start: 20160429, end: 2016
  6. COSOPT [Concomitant]
     Active Substance: DORZOLAMIDE HYDROCHLORIDE\TIMOLOL MALEATE
     Indication: HERPES ZOSTER
     Dosage: IN EACH EYE
     Route: 047
     Dates: start: 201601
  7. FML [Concomitant]
     Active Substance: FLUOROMETHOLONE
     Dosage: DOSE INCREASED, IN LEFT EYE
     Route: 047
     Dates: start: 20160627

REACTIONS (7)
  - Ocular hyperaemia [Recovering/Resolving]
  - Dry eye [Recovering/Resolving]
  - Eye pain [Recovering/Resolving]
  - Eye pruritus [Recovering/Resolving]
  - Product physical issue [Unknown]
  - Drug dose omission [Unknown]
  - Off label use [Unknown]

NARRATIVE: CASE EVENT DATE: 2016
